FAERS Safety Report 8996781 (Version 1)
Quarter: 2012Q4

REPORT INFORMATION
  Report Type: Spontaneous
  Country: US (occurrence: None)
  Receive Date: 20121228
  Receipt Date: 20121228
  Transmission Date: 20130627
  Serious: Yes (Other)
  Sender: FDA-Public Use
  Company Number: None

PATIENT
  Age: 62 Year
  Sex: Female
  Weight: 117.94 kg

DRUGS (1)
  1. ATORVASTATIN [Suspect]
     Indication: CHOLESTEROL HIGH
     Dosage: AT BEDTIME
     Dates: start: 20120914, end: 20121116

REACTIONS (6)
  - Product quality issue [None]
  - Product contamination physical [None]
  - Abdominal pain upper [None]
  - Melaena [None]
  - Epigastric discomfort [None]
  - Gastric mucosa erythema [None]
